FAERS Safety Report 16542478 (Version 1)
Quarter: 2019Q3

REPORT INFORMATION
  Report Type: Report from Study
  Country: None (occurrence: US)
  Receive Date: 20190709
  Receipt Date: 20190709
  Transmission Date: 20191004
  Serious: Yes (Other)
  Sender: FDA-Public Use
  Company Number: US-ABBVIE-19K-163-2838644-00

PATIENT
  Sex: Male

DRUGS (1)
  1. MAVYRET [Suspect]
     Active Substance: GLECAPREVIR\PIBRENTASVIR
     Indication: HEPATITIS C
     Dosage: 100/40 MG
     Route: 048
     Dates: start: 20190508

REACTIONS (6)
  - Diabetes mellitus [Unknown]
  - Condition aggravated [Unknown]
  - Hepatic cirrhosis [Unknown]
  - Musculoskeletal stiffness [Unknown]
  - Anal incontinence [Unknown]
  - Neuropathy peripheral [Unknown]

NARRATIVE: CASE EVENT DATE: 2019
